FAERS Safety Report 22609552 (Version 1)
Quarter: 2023Q2

REPORT INFORMATION
  Report Type: Spontaneous
  Country: LV (occurrence: None)
  Receive Date: 20230616
  Receipt Date: 20230616
  Transmission Date: 20230722
  Serious: Yes (Hospitalization)
  Sender: FDA-Public Use
  Company Number: None

PATIENT
  Age: 6 Year
  Sex: Female
  Weight: 21 kg

DRUGS (3)
  1. TOCILIZUMAB [Suspect]
     Active Substance: TOCILIZUMAB
     Indication: Still^s disease
     Dosage: 162 MG ONE TIME PER TWO WEEKS
     Route: 058
     Dates: start: 20230417, end: 20230529
  2. KINERET [Concomitant]
     Active Substance: ANAKINRA
     Indication: Still^s disease
     Dosage: 20MG ONCE?100 MG/0.67 ML SOLUTION FOR INJECTION IN PRE-FILLED SYRINGE
     Route: 065
     Dates: start: 20230409, end: 20230409
  3. MEDROL [Concomitant]
     Active Substance: METHYLPREDNISOLONE
     Indication: Still^s disease
     Dosage: 12 MG PER DAY 2023/04/12 - 2023/04/23, 8MG PER DAY 2023/04/24- 2023/04/30, 4 MG PER DAY 2023/05/01 -
     Route: 065
     Dates: start: 20230412, end: 20230528

REACTIONS (1)
  - Drug-induced liver injury [Recovering/Resolving]

NARRATIVE: CASE EVENT DATE: 20230526
